FAERS Safety Report 15281302 (Version 2)
Quarter: 2018Q3

REPORT INFORMATION
  Report Type: Report from Study
  Country: US (occurrence: US)
  Receive Date: 20180815
  Receipt Date: 20180817
  Transmission Date: 20181010
  Serious: Yes (Other)
  Sender: FDA-Public Use
  Company Number: US-AMGEN-USASL2018111497

PATIENT
  Age: 44 Year
  Sex: Female

DRUGS (1)
  1. AIMOVIG [Suspect]
     Active Substance: ERENUMAB-AOOE
     Indication: MIGRAINE WITHOUT AURA
     Dosage: 70 MG, QMO
     Route: 065
     Dates: start: 20180728

REACTIONS (6)
  - Lip swelling [Unknown]
  - Rash generalised [Unknown]
  - Swelling face [Unknown]
  - Eye irritation [Unknown]
  - Eye swelling [Unknown]
  - Oral discomfort [Unknown]

NARRATIVE: CASE EVENT DATE: 201808
